FAERS Safety Report 5338651-2 (Version None)
Quarter: 2007Q2

REPORT INFORMATION
  Report Type: 
  Country: None (occurrence: None)
  Receive Date: 20070530
  Receipt Date: 20070523
  Transmission Date: 20071010
  Serious: Yes (Other)
  Sender: FDA-Public Use
  Company Number: US-MERCK-0705USA00331

PATIENT
  Age: 46 Year
  Sex: Male
  Weight: 105 kg

DRUGS (2)
  1. JANUVIA [Suspect]
     Indication: DIABETES MELLITUS
     Route: 048
     Dates: start: 20070109, end: 20070115
  2. NORVASC [Concomitant]
     Route: 065
     Dates: start: 20070109

REACTIONS (2)
  - BLOOD GLUCOSE INCREASED [None]
  - RASH [None]
